FAERS Safety Report 17149009 (Version 1)
Quarter: 2019Q4

REPORT INFORMATION
  Report Type: Report from Study
  Country: US (occurrence: US)
  Receive Date: 20191213
  Receipt Date: 20191213
  Transmission Date: 20200122
  Serious: Yes (Other)
  Sender: FDA-Public Use
  Company Number: US-ROCHE-2382144

PATIENT
  Age: 65 Year
  Sex: Female
  Weight: 90.8 kg

DRUGS (15)
  1. REMICADE [Concomitant]
     Active Substance: INFLIXIMAB
  2. PANTOPRAZOLE [Concomitant]
     Active Substance: PANTOPRAZOLE
  3. NAPROXEN. [Concomitant]
     Active Substance: NAPROXEN
  4. RITUXAN [Suspect]
     Active Substance: RITUXIMAB
     Indication: RHEUMATOID ARTHRITIS
     Dosage: AS NEEDED FOR PAIN ;ONGOING: YES
     Route: 042
  5. ROSUVASTATIN. [Concomitant]
     Active Substance: ROSUVASTATIN
  6. ACTEMRA [Suspect]
     Active Substance: TOCILIZUMAB
     Indication: RHEUMATOID ARTHRITIS
     Dosage: INFUSION LASTS 1 HOUR ;ONGOING: YES
     Route: 042
     Dates: start: 20180620
  7. TELMISARTAN. [Concomitant]
     Active Substance: TELMISARTAN
  8. XELJANZ [Concomitant]
     Active Substance: TOFACITINIB CITRATE
  9. SYNTHROID [Concomitant]
     Active Substance: LEVOTHYROXINE SODIUM
  10. FOLIC ACID. [Concomitant]
     Active Substance: FOLIC ACID
  11. VESICARE [Concomitant]
     Active Substance: SOLIFENACIN SUCCINATE
  12. JANUVIA [Concomitant]
     Active Substance: SITAGLIPTIN PHOSPHATE
  13. METFORMIN HCL [Concomitant]
     Active Substance: METFORMIN HYDROCHLORIDE
  14. BYSTOLIC [Concomitant]
     Active Substance: NEBIVOLOL HYDROCHLORIDE
  15. NIFEDIPINE. [Concomitant]
     Active Substance: NIFEDIPINE

REACTIONS (20)
  - Rash [Recovered/Resolved]
  - Inflammation [Recovered/Resolved]
  - Bronchitis [Recovered/Resolved]
  - Helicobacter infection [Unknown]
  - Type 2 diabetes mellitus [Not Recovered/Not Resolved]
  - Pharyngeal disorder [Recovered/Resolved]
  - Sinusitis [Recovered/Resolved]
  - Constipation [Recovered/Resolved]
  - Fluid retention [Recovered/Resolved]
  - Rheumatoid arthritis [Recovered/Resolved]
  - Ill-defined disorder [Recovered/Resolved]
  - Dyspepsia [Not Recovered/Not Resolved]
  - Herpes virus infection [Not Recovered/Not Resolved]
  - Pruritus [Recovered/Resolved]
  - Immune system disorder [Recovered/Resolved]
  - Pain in extremity [Recovered/Resolved]
  - Pyrexia [Recovered/Resolved]
  - Choking [Recovered/Resolved]
  - Dyspnoea [Recovered/Resolved]
  - Gait inability [Recovered/Resolved]

NARRATIVE: CASE EVENT DATE: 201904
